FAERS Safety Report 8143853-6 (Version None)
Quarter: 2012Q1

REPORT INFORMATION
  Report Type: 
  Country: None (occurrence: None)
  Receive Date: 20120217
  Receipt Date: 20120207
  Transmission Date: 20120608
  Serious: Yes (Other)
  Sender: FDA-Public Use
  Company Number: US-JNJFOC-20120204973

PATIENT
  Sex: Male
  Weight: 99.79 kg

DRUGS (5)
  1. FELDENE [Concomitant]
     Indication: INFLAMMATION
     Route: 048
  2. VALIUM [Concomitant]
     Indication: MUSCLE SPASMS
     Dosage: TAKEN AS NEEDED AT NIGHT TIMES
     Route: 048
  3. CAPTOPRIL [Concomitant]
     Indication: HYPERTENSION
     Route: 048
  4. REMICADE [Suspect]
     Indication: PSORIATIC ARTHROPATHY
     Route: 042
     Dates: start: 20091001
  5. TENORETIC 100 [Concomitant]
     Indication: HYPERTENSION
     Route: 048

REACTIONS (3)
  - JOINT INJURY [None]
  - PRECANCEROUS SKIN LESION [None]
  - CHONDROPATHY [None]
